FAERS Safety Report 9462117 (Version 1)
Quarter: 2013Q3

REPORT INFORMATION
  Report Type: Spontaneous
  Country: US (occurrence: None)
  Receive Date: 20130813
  Receipt Date: 20130813
  Transmission Date: 20140515
  Serious: Yes (Life-Threatening, Hospitalization)
  Sender: FDA-Public Use
  Company Number: 1713747-2013-99930

PATIENT
  Age: 42 Year
  Sex: Female
  Weight: 57.5 kg

DRUGS (7)
  1. SALINE [Suspect]
  2. FRESENIUS 200BK [Concomitant]
  3. HEMODIALYSIS MACHINE [Concomitant]
  4. BLOODLINES [Concomitant]
  5. DIALYZER [Concomitant]
  6. GRANUFLO [Concomitant]
  7. NATURALYTE [Concomitant]

REACTIONS (5)
  - Unresponsive to stimuli [None]
  - Pulse absent [None]
  - Blood pressure immeasurable [None]
  - Cyanosis [None]
  - Post procedural complication [None]
